FAERS Safety Report 7010374-3 (Version None)
Quarter: 2010Q3

REPORT INFORMATION
  Report Type: 
  Country: None (occurrence: None)
  Receive Date: 20100923
  Receipt Date: 20100909
  Transmission Date: 20110219
  Serious: Yes (Hospitalization)
  Sender: FDA-Public Use
  Company Number: SG-MYLANLABS-2010S1016378

PATIENT
  Age: 53 Year
  Sex: Male

DRUGS (4)
  1. VALPROIC ACID [Suspect]
     Indication: OVERDOSE
     Route: 065
  2. VALPROIC ACID [Suspect]
     Indication: CONVULSION
     Route: 065
  3. VALPROIC ACID [Suspect]
     Dosage: USUAL 1400MG/DAY DOSE
     Route: 065
  4. VALPROIC ACID [Suspect]
     Dosage: USUAL 1400MG/DAY DOSE
     Route: 065

REACTIONS (2)
  - ACCIDENTAL OVERDOSE [None]
  - CHOREA [None]
